FAERS Safety Report 19492690 (Version 4)
Quarter: 2022Q2

REPORT INFORMATION
  Report Type: Other
  Country: KR (occurrence: None)
  Receive Date: 20210705
  Receipt Date: 20220412
  Transmission Date: 20220721
  Serious: Yes (Hospitalization)
  Sender: FDA-Public Use
  Company Number: KR-ROCHE-2860219

PATIENT
  Age: 64 Year
  Sex: Male
  Weight: 69.6 kg

DRUGS (2)
  1. ATEZOLIZUMAB [Suspect]
     Active Substance: ATEZOLIZUMAB
     Indication: Hepatocellular carcinoma
     Dosage: ON 26/MAR/2021, 16/APR/2021 AND 07/MAY/2021, HE RECEIVED THE SUBSEQUENT DOSE OF ATEZOLIZUMAB.
     Route: 041
     Dates: start: 20210305
  2. BEVACIZUMAB [Suspect]
     Active Substance: BEVACIZUMAB
     Indication: Hepatocellular carcinoma
     Dosage: ON 26/MAR/2021, 16/APR/2021 AND 07/MAY/2021, HE RECEIVED THE SUBSEQUENT DOSE OF BEVACIZUMAB.
     Route: 042
     Dates: start: 20210305

REACTIONS (3)
  - Fournier^s gangrene [Recovered/Resolved]
  - Haematemesis [Recovered/Resolved]
  - Varices oesophageal [Recovered/Resolved]

NARRATIVE: CASE EVENT DATE: 20210512
